FAERS Safety Report 11603782 (Version 1)
Quarter: 2015Q4

REPORT INFORMATION
  Report Type: Spontaneous
  Country: US (occurrence: None)
  Receive Date: 20151006
  Receipt Date: 20151006
  Transmission Date: 20160304
  Serious: Yes (Hospitalization)
  Sender: FDA-Public Use
  Company Number: None

PATIENT
  Age: 55 Year
  Sex: Female
  Weight: 87.7 kg

DRUGS (5)
  1. PROCARBAZINE [Suspect]
     Active Substance: PROCARBAZINE
     Dates: end: 20150410
  2. RITUXIMAB [Suspect]
     Active Substance: RITUXIMAB
     Dates: end: 20150417
  3. CYTARABINE. [Suspect]
     Active Substance: CYTARABINE
     Dates: end: 20150707
  4. VINCRISTINE [Suspect]
     Active Substance: VINCRISTINE
     Dates: end: 20150213
  5. METHOTREXATE [Suspect]
     Active Substance: METHOTREXATE
     Dates: end: 20150418

REACTIONS (3)
  - Pyrexia [None]
  - Urinary tract infection [None]
  - Neutropenia [None]

NARRATIVE: CASE EVENT DATE: 20150715
